FAERS Safety Report 4619709-X (Version None)
Quarter: 2005Q1

REPORT INFORMATION
  Report Type: 
  Country: None (occurrence: None)
  Receive Date: 20050324
  Receipt Date: 20050309
  Transmission Date: 20050727
  Serious: Yes (Hospitalization)
  Sender: FDA-Public Use
  Company Number: FR_050306006

PATIENT
  Sex: Female

DRUGS (1)
  1. CELANCE                   (PERGOLIDE MESYLATE) [Suspect]
     Indication: PARKINSON'S DISEASE

REACTIONS (3)
  - MANIA [None]
  - PATHOLOGICAL GAMBLING [None]
  - THINKING ABNORMAL [None]
